FAERS Safety Report 10201055 (Version 2)
Quarter: 2014Q2

REPORT INFORMATION
  Report Type: Spontaneous
  Country: DE (occurrence: DE)
  Receive Date: 20140528
  Receipt Date: 20140606
  Transmission Date: 20141212
  Serious: Yes (Hospitalization, Disabling)
  Sender: FDA-Public Use
  Company Number: DE-SA-2014SA065363

PATIENT
  Age: 68 Year
  Sex: Male
  Weight: 72.2 kg

DRUGS (9)
  1. JEVTANA [Suspect]
     Indication: PROSTATE CANCER
     Dosage: FREQUENCY: Q22D
     Route: 042
     Dates: start: 20131218, end: 20131218
  2. JEVTANA [Suspect]
     Indication: PROSTATE CANCER
     Route: 042
     Dates: start: 20140515, end: 20140515
  3. JEVTANA [Suspect]
     Indication: PROSTATE CANCER
     Route: 042
  4. PREDNISONE [Concomitant]
     Route: 048
  5. PROLIA [Concomitant]
     Indication: METASTASES TO BONE
  6. LISINOPRIL [Concomitant]
     Indication: HYPERTENSION
     Route: 048
  7. CEFASEL [Concomitant]
     Route: 048
  8. ISCADOR [Concomitant]
     Indication: PROSTATE CANCER
     Route: 058
  9. ELIGARD [Concomitant]
     Indication: PROSTATE CANCER
     Route: 058

REACTIONS (3)
  - Renal colic [Unknown]
  - Pain [Unknown]
  - Haematuria [Unknown]
